FAERS Safety Report 16734873 (Version 1)
Quarter: 2019Q3

REPORT INFORMATION
  Report Type: Spontaneous
  Country: US (occurrence: US)
  Receive Date: 20190823
  Receipt Date: 20190823
  Transmission Date: 20191005
  Serious: Yes (Other)
  Sender: FDA-Public Use
  Company Number: US-ASTRAZENECA-2019SF20146

PATIENT
  Sex: Female

DRUGS (2)
  1. OLAPARIB. [Suspect]
     Active Substance: OLAPARIB
     Indication: GENITAL NEOPLASM MALIGNANT FEMALE
     Dosage: UNK
     Route: 048
     Dates: start: 201903, end: 201904
  2. OLAPARIB. [Suspect]
     Active Substance: OLAPARIB
     Indication: METASTASES TO LIVER
     Dosage: UNK
     Route: 048
     Dates: start: 201903, end: 201904

REACTIONS (2)
  - Blood bilirubin increased [Unknown]
  - Malignant neoplasm progression [Unknown]

NARRATIVE: CASE EVENT DATE: 2019
